FAERS Safety Report 5226459-8 (Version None)
Quarter: 2007Q1

REPORT INFORMATION
  Report Type: 
  Country: None (occurrence: None)
  Receive Date: 20070201
  Receipt Date: 20061212
  Transmission Date: 20070707
  Serious: Yes (Other)
  Sender: FDA-Public Use
  Company Number: US-PFIZER INC-2006027571

PATIENT
  Sex: Male
  Weight: 118.4 kg

DRUGS (4)
  1. BEXTRA [Suspect]
     Indication: ARTHRALGIA
  2. NAPROXEN [Concomitant]
  3. TEGRETOL [Concomitant]
  4. ASPIRIN [Concomitant]

REACTIONS (1)
  - RASH [None]
